FAERS Safety Report 5977803-5 (Version None)
Quarter: 2008Q4

REPORT INFORMATION
  Report Type: 
  Country: None (occurrence: None)
  Receive Date: 20081201
  Receipt Date: 20081201
  Transmission Date: 20090506
  Serious: Yes (Life-Threatening)
  Sender: FDA-Public Use
  Company Number: None

PATIENT
  Age: 41 Year
  Sex: Female
  Weight: 74.8435 kg

DRUGS (2)
  1. BUPROPION HCL XL 150 MG TEVA [Suspect]
     Indication: DEPRESSION
     Dosage: 150 MG QD PO
     Route: 048
     Dates: start: 20081104, end: 20081108
  2. BUPROPION HCL XL 300 MG TEVA [Suspect]
     Indication: DEPRESSION
     Dosage: 300 MG QD PO
     Route: 048
     Dates: start: 20080409, end: 20080413

REACTIONS (4)
  - FEELING HOT [None]
  - FLUSHING [None]
  - HEADACHE [None]
  - PRODUCT QUALITY ISSUE [None]
